FAERS Safety Report 6694604-3 (Version None)
Quarter: 2010Q2

REPORT INFORMATION
  Report Type: 
  Country: None (occurrence: None)
  Receive Date: 20100423
  Receipt Date: 20100415
  Transmission Date: 20101027
  Serious: Yes (Hospitalization)
  Sender: FDA-Public Use
  Company Number: NO-TEVA-231694ISR

PATIENT
  Age: 35 Year
  Sex: Female

DRUGS (5)
  1. PRAMIPEXOLE DIHYDROCHLORIDE [Suspect]
     Indication: MIGRAINE PROPHYLAXIS
  2. CANDESARTAN CILEXETIL [Suspect]
     Indication: MIGRAINE PROPHYLAXIS
     Route: 048
  3. AMITRIPTYLINE HCL [Suspect]
     Indication: MIGRAINE PROPHYLAXIS
  4. METOCLOPRAMIDE HYDROCHLORIDE [Concomitant]
     Indication: MIGRAINE
  5. ZOLMITRIPTAN [Concomitant]
     Indication: MIGRAINE

REACTIONS (1)
  - OLIGOHYDRAMNIOS [None]
